FAERS Safety Report 25920768 (Version 3)
Quarter: 2025Q4

REPORT INFORMATION
  Report Type: Spontaneous
  Country: US (occurrence: US)
  Receive Date: 20251014
  Receipt Date: 20251126
  Transmission Date: 20260117
  Serious: Yes (Other)
  Sender: BRISTOL-MYERS SQUIBB COMPANY
  Company Number: US-BRISTOL-MYERS SQUIBB COMPANY-2025-140205

PATIENT
  Age: 81 Year
  Sex: Female

DRUGS (2)
  1. POMALYST [Suspect]
     Active Substance: POMALIDOMIDE
     Indication: Plasma cell myeloma recurrent
     Dosage: TAKE 1 CAPSULE BY MOUTH DAILY ON DAYS 1-21 OF A 28 DAY CYCLE.
     Route: 048
     Dates: end: 20251011
  2. POMALYST [Suspect]
     Active Substance: POMALIDOMIDE
     Dosage: TAKE 1 CAPSULE BY MOUTH EVERY DAY ON DAYS 1-21 OF A 28-DAY CYCLE.
     Route: 048

REACTIONS (10)
  - Light chain analysis abnormal [Unknown]
  - Heart rate abnormal [Unknown]
  - Blood pressure abnormal [Unknown]
  - Syncope [Recovered/Resolved]
  - Asthenia [Not Recovered/Not Resolved]
  - Dizziness [Recovered/Resolved]
  - Confusional state [Recovering/Resolving]
  - Dry mouth [Recovering/Resolving]
  - Seizure [Recovered/Resolved]
  - Balance disorder [Recovered/Resolved]

NARRATIVE: CASE EVENT DATE: 20251011
